FAERS Safety Report 8155551-3 (Version None)
Quarter: 2012Q1

REPORT INFORMATION
  Report Type: 
  Country: None (occurrence: None)
  Receive Date: 20120215
  Receipt Date: 20120210
  Transmission Date: 20120608
  Serious: Yes (Other)
  Sender: FDA-Public Use
  Company Number: GER/UKI/12/0022928

PATIENT
  Age: 80 Year
  Sex: Male

DRUGS (8)
  1. LAMOTRIGINE [Suspect]
     Indication: EPILEPSY
     Dosage: 25 MG, 1 IN 1 D
  2. LATANOPROST [Concomitant]
  3. FINASTERIDE [Concomitant]
  4. WARFARIN SODIUM [Concomitant]
  5. LEVOTHYROXINE SODIUM [Concomitant]
  6. RAMIPRIL [Suspect]
     Indication: HYPERTENSION
     Dosage: 1.25 MG, 1 IN 1 D, ORAL
     Route: 048
     Dates: start: 20120124
  7. DOUBLEBASE (HYDROMOL) DOUBLEBASE (HYDROMOL /00906601/) [Concomitant]
  8. TAMSULOSIN HCL [Concomitant]

REACTIONS (3)
  - ANAEMIA [None]
  - MYELODYSPLASTIC SYNDROME [None]
  - WHITE BLOOD CELL COUNT DECREASED [None]
